FAERS Safety Report 8070145-6 (Version None)
Quarter: 2012Q1

REPORT INFORMATION
  Report Type: 
  Country: None (occurrence: None)
  Receive Date: 20120125
  Receipt Date: 20120117
  Transmission Date: 20120608
  Serious: Yes (Death, Hospitalization)
  Sender: FDA-Public Use
  Company Number: GB-ROCHE-1007808

PATIENT
  Sex: Female

DRUGS (14)
  1. LUCENTIS [Suspect]
     Indication: PRODUCT USED FOR UNKNOWN INDICATION
     Route: 050
  2. ALPHAGAN [Concomitant]
  3. BETAPEN [Concomitant]
  4. LACTULOSE [Concomitant]
  5. SIMVASTATIN [Concomitant]
  6. ASPIRIN [Concomitant]
  7. MOVIPREP [Concomitant]
  8. ACETAMINOPHEN AND CODEINE PHOSPHATE [Concomitant]
  9. LEVOTHYROXINE SODIUM [Concomitant]
  10. SENNA [Concomitant]
  11. INSULIN [Concomitant]
  12. CANDESARTAN CILEXETIL [Concomitant]
  13. ESTRADIOL [Concomitant]
     Route: 067
  14. HYDROXOCOBALAMIN [Concomitant]

REACTIONS (2)
  - FLATULENCE [None]
  - UROSEPSIS [None]
